FAERS Safety Report 10690637 (Version 1)
Quarter: 2015Q1

REPORT INFORMATION
  Report Type: Spontaneous
  Country: US (occurrence: US)
  Receive Date: 20150105
  Receipt Date: 20150105
  Transmission Date: 20150720
  Serious: Yes (Death, Other)
  Sender: FDA-Public Use
  Company Number: PHHY2014US169735

PATIENT
  Age: 21 Year
  Sex: Male

DRUGS (1)
  1. METFORMIN [Suspect]
     Active Substance: METFORMIN HYDROCHLORIDE
     Indication: PRODUCT USED FOR UNKNOWN INDICATION
     Route: 065

REACTIONS (7)
  - Depressed level of consciousness [Unknown]
  - Anion gap [Unknown]
  - Tachycardia [Unknown]
  - Death [Fatal]
  - Hypotension [Unknown]
  - Coma [Unknown]
  - Metabolic acidosis [Unknown]
